FAERS Safety Report 21946394 (Version 1)
Quarter: 2023Q1

REPORT INFORMATION
  Report Type: Spontaneous
  Country: US (occurrence: US)
  Receive Date: 20230202
  Receipt Date: 20230202
  Transmission Date: 20230417
  Serious: No
  Sender: FDA-Public Use
  Company Number: US-SANOFI-01471485

PATIENT
  Age: 71 Year
  Sex: Male

DRUGS (1)
  1. AMBIEN [Suspect]
     Active Substance: ZOLPIDEM TARTRATE
     Indication: Insomnia
     Dosage: DRUG TREATMENT DURATION:SINCE 20 TO 30 YEARS AGO
     Route: 065

REACTIONS (2)
  - Muscular weakness [Not Recovered/Not Resolved]
  - Product use issue [Unknown]
